FAERS Safety Report 8980663 (Version 2)
Quarter: 2013Q2

REPORT INFORMATION
  Report Type: Report from Study
  Country: US (occurrence: US)
  Receive Date: 20121221
  Receipt Date: 20130522
  Transmission Date: 20140414
  Serious: Yes (Hospitalization, Other)
  Sender: FDA-Public Use
  Company Number: US-ABBOTT-12P-163-1022675-00

PATIENT
  Age: 47 Year
  Sex: Female
  Weight: 65.83 kg

DRUGS (4)
  1. HUMIRA [Suspect]
     Indication: CROHN^S DISEASE
     Dates: start: 20110711
  2. HUMIRA [Suspect]
  3. HUMIRA [Suspect]
     Dates: end: 20111118
  4. HUMIRA [Suspect]
     Dates: start: 20120503

REACTIONS (4)
  - Enterocolitis [Recovered/Resolved]
  - Intestinal stenosis [Unknown]
  - Ileostomy closure [Unknown]
  - Abdominal pain [Unknown]
